FAERS Safety Report 4349711-7 (Version None)
Quarter: 2004Q2

REPORT INFORMATION
  Report Type: 
  Country: None (occurrence: None)
  Receive Date: 20040426
  Receipt Date: 20030805
  Transmission Date: 20050107
  Serious: Yes (Life-Threatening)
  Sender: FDA-Public Use
  Company Number: 2003030291

PATIENT
  Age: 10 Month
  Sex: Male

DRUGS (2)
  1. AZITHROMYCIN [Suspect]
     Indication: OTITIS MEDIA ACUTE
     Dosage: 100 MG (DAILY), ORAL
     Route: 048
     Dates: start: 20020910, end: 20020912
  2. ACETAMINOPHEN [Concomitant]

REACTIONS (1)
  - ERYTHEMA MULTIFORME [None]
